FAERS Safety Report 6544158 (Version 2)
Quarter: 2012Q4

REPORT INFORMATION
  Report Type: 
  Country: US (occurrence: US)
  Receive Date: 20080205
  Receipt Date: 20121024
  Transmission Date: 20130627
  Serious: Yes (Hospitalization)
  Sender: FDA-Public Use
  Company Number: US-ELI_LILLY_AND_COMPANY-US200711002590

PATIENT
  Age: 51 Year
  Sex: Male
  Weight: 101.59 kg

DRUGS (6)
  1. BYETTA [Suspect]
     Indication: TYPE 2 DIABETES MELLITUS
     Dosage: 5 ug, 2/D
     Route: 058
     Dates: start: 20070615, end: 20070725
  2. GLUCOTROL [Concomitant]
     Indication: TYPE 2 DIABETES MELLITUS
     Dosage: 10 mg, daily (1/D)
     Dates: start: 2004
  3. METFORMIN [Concomitant]
     Indication: TYPE 2 DIABETES MELLITUS
     Dosage: 1000 mg, 2/D
     Dates: start: 2001
  4. ADVIL /00109201/ [Concomitant]
     Dosage: UNK, daily (1/D)
  5. DIOVAN [Concomitant]
  6. ASPIRIN [Concomitant]
     Dosage: UNK, unknown

REACTIONS (3)
  - Renal failure acute [Recovered/Resolved]
  - Renal tubular necrosis [Unknown]
  - Constipation [Recovered/Resolved]
